FAERS Safety Report 16887468 (Version 6)
Quarter: 2024Q3

REPORT INFORMATION
  Report Type: Spontaneous
  Country: DE (occurrence: DE)
  Receive Date: 20191004
  Receipt Date: 20240716
  Transmission Date: 20241017
  Serious: Yes (Life-Threatening, Hospitalization, Other)
  Sender: AUROBINDO
  Company Number: None

PATIENT
  Age: 31 Year
  Sex: Male
  Weight: 110 kg

DRUGS (12)
  1. ARIPIPRAZOLE [Suspect]
     Active Substance: ARIPIPRAZOLE
     Indication: Schizophrenia
     Dosage: UNK
     Route: 065
  2. CLOZAPINE [Suspect]
     Active Substance: CLOZAPINE
     Indication: Schizoaffective disorder
     Dosage: 100 MILLIGRAM
     Route: 065
  3. RISPERIDONE [Suspect]
     Active Substance: RISPERIDONE
     Indication: Schizophrenia
     Dosage: UNK
     Route: 065
  4. VENLAFAXINE [Suspect]
     Active Substance: VENLAFAXINE HYDROCHLORIDE
     Indication: Schizoaffective disorder
     Dosage: 150 MILLIGRAM
     Route: 065
  5. LITHIUM SULFATE [Suspect]
     Active Substance: LITHIUM SULFATE
     Indication: Schizoaffective disorder
     Dosage: 900 MILLIGRAM
     Route: 065
  6. DOXEPIN [Suspect]
     Active Substance: DOXEPIN
     Indication: Schizophrenia
     Dosage: UNK
     Route: 065
  7. VALPROIC ACID [Suspect]
     Active Substance: VALPROIC ACID
     Indication: Schizophrenia
     Dosage: UNK
     Route: 065
  8. PIPAMPERONE [Suspect]
     Active Substance: PIPAMPERONE
     Indication: Schizophrenia
     Dosage: UNK
     Route: 065
  9. LITHIUM [Suspect]
     Active Substance: LITHIUM
     Indication: Schizoaffective disorder
     Dosage: 900 MILLIGRAM
     Route: 065
  10. AMISULPRIDE [Concomitant]
     Active Substance: AMISULPRIDE
     Indication: Schizophrenia
     Dosage: UNK
     Route: 065
  11. OLANZAPINE [Concomitant]
     Active Substance: OLANZAPINE
     Indication: Schizophrenia
     Dosage: UNK
     Route: 065
  12. MIRTAZAPINE [Concomitant]
     Active Substance: MIRTAZAPINE
     Indication: Product used for unknown indication
     Dosage: UNK
     Route: 065

REACTIONS (29)
  - Toxic cardiomyopathy [Recovered/Resolved]
  - Left ventricular dysfunction [Recovered/Resolved]
  - Electrocardiogram QT prolonged [Recovered/Resolved]
  - Cardiomegaly [Unknown]
  - Chest pain [Recovering/Resolving]
  - Pulmonary congestion [Unknown]
  - Pulmonary hypertension [Unknown]
  - Drug level increased [Unknown]
  - Suicidal ideation [Unknown]
  - Therapeutic response decreased [Recovered/Resolved]
  - Dyspnoea [Recovering/Resolving]
  - Antipsychotic drug level above therapeutic [Unknown]
  - Cardiac failure [Recovering/Resolving]
  - Left atrial dilatation [Unknown]
  - Dizziness [Unknown]
  - Left ventricular enlargement [Recovered/Resolved]
  - Blood pressure systolic decreased [Recovered/Resolved]
  - Fatigue [Recovering/Resolving]
  - Inflammation [Unknown]
  - Cardiomyopathy [Recovering/Resolving]
  - C-reactive protein increased [Unknown]
  - Oedema peripheral [Unknown]
  - Tachycardia [Unknown]
  - Hypertension [Unknown]
  - Left ventricular dilatation [Recovered/Resolved]
  - Right ventricular dilatation [Unknown]
  - Fibrosis [Unknown]
  - Drug ineffective [Unknown]
  - Product use in unapproved indication [Unknown]
